FAERS Safety Report 8193811-0 (Version None)
Quarter: 2012Q1

REPORT INFORMATION
  Report Type: 
  Country: None (occurrence: None)
  Receive Date: 20120308
  Receipt Date: 20120305
  Transmission Date: 20120608
  Serious: Yes (Life-Threatening, Hospitalization)
  Sender: FDA-Public Use
  Company Number: PHHY2012GB018907

PATIENT
  Age: 76 Year
  Sex: Male

DRUGS (13)
  1. FERROUS SULFATE TAB [Concomitant]
  2. ALBUTEROL [Concomitant]
  3. METHOTREXATE [Suspect]
     Indication: RHEUMATOID ARTHRITIS
     Dosage: 15 MG/WEEK
     Route: 048
     Dates: end: 20110215
  4. AMLODIPINE [Concomitant]
  5. DOXYCYCLINE [Concomitant]
     Indication: LOWER RESPIRATORY TRACT INFECTION
  6. CELECOXIB [Concomitant]
  7. CO-DYDRAMOL [Concomitant]
  8. LANSOPRAZOLE [Concomitant]
  9. PREDNISOLONE [Concomitant]
     Indication: LOWER RESPIRATORY TRACT INFECTION
  10. RAMIPRIL [Concomitant]
  11. TIOPRONIN [Concomitant]
  12. FOLIC ACID [Concomitant]
  13. FLUTICASONE PROPIONATE/SALMETEROL [Concomitant]

REACTIONS (7)
  - WEIGHT DECREASED [None]
  - NEUTROPENIA [None]
  - ORAL PAIN [None]
  - FATIGUE [None]
  - DYSPNOEA [None]
  - PYREXIA [None]
  - PANCYTOPENIA [None]
